FAERS Safety Report 11246016 (Version 1)
Quarter: 2015Q3

REPORT INFORMATION
  Report Type: Report from Study
  Country: US (occurrence: US)
  Receive Date: 20150708
  Receipt Date: 20150708
  Transmission Date: 20151125
  Serious: Yes (Other)
  Sender: FDA-Public Use
  Company Number: US-ROCHE-1383034

PATIENT
  Sex: Female

DRUGS (10)
  1. LYRICA [Concomitant]
     Active Substance: PREGABALIN
     Indication: FIBROMYALGIA
     Route: 048
  2. XOLAIR [Suspect]
     Active Substance: OMALIZUMAB
     Indication: ASTHMA
     Route: 065
  3. XOLAIR [Suspect]
     Active Substance: OMALIZUMAB
     Route: 058
     Dates: start: 201502
  4. SYNTHROID [Concomitant]
     Active Substance: LEVOTHYROXINE SODIUM
     Indication: HYPOTHYROIDISM
     Route: 048
  5. OMEPRAZOLE. [Concomitant]
     Active Substance: OMEPRAZOLE
     Route: 048
  6. PROAIR HFA [Concomitant]
     Active Substance: ALBUTEROL SULFATE
     Indication: ASTHMA
     Route: 065
  7. ADVAIR HFA [Concomitant]
     Active Substance: FLUTICASONE PROPIONATE\SALMETEROL XINAFOATE
     Indication: ASTHMA
     Dosage: (50-150MG)
     Route: 055
  8. XOLAIR [Suspect]
     Active Substance: OMALIZUMAB
     Indication: HYPERSENSITIVITY
     Route: 065
  9. PERCOCET [Concomitant]
     Active Substance: ACETAMINOPHEN\OXYCODONE HYDROCHLORIDE
     Indication: BREAKTHROUGH PAIN
     Dosage: 5-325 MG AS NEEDED
     Route: 048
  10. LYRICA [Concomitant]
     Active Substance: PREGABALIN
     Indication: ARTHRALGIA

REACTIONS (13)
  - Dyspnoea [Unknown]
  - Multiple injuries [Unknown]
  - Constipation [Unknown]
  - Gastric disorder [Unknown]
  - Mitral valve prolapse [Unknown]
  - Disability [Unknown]
  - Gastrooesophageal reflux disease [Unknown]
  - Eye pruritus [Unknown]
  - Cough [Unknown]
  - Insomnia [Unknown]
  - Hypersensitivity [Unknown]
  - Palpitations [Unknown]
  - Road traffic accident [Unknown]
